FAERS Safety Report 7896371-4 (Version None)
Quarter: 2011Q4

REPORT INFORMATION
  Report Type: 
  Country: None (occurrence: None)
  Receive Date: 20111106
  Receipt Date: 20110908
  Transmission Date: 20120403
  Serious: No
  Sender: FDA-Public Use
  Company Number: US-AMGEN-USASP2011046126

PATIENT
  Age: 56 Year
  Sex: Female

DRUGS (1)
  1. ENBREL [Suspect]
     Indication: RHEUMATOID ARTHRITIS
     Dosage: 25 MG, 2 TIMES/WK
     Dates: start: 20020101

REACTIONS (7)
  - PAIN IN EXTREMITY [None]
  - INJECTION SITE REACTION [None]
  - INJECTION SITE PAIN [None]
  - PAIN [None]
  - INJECTION SITE SWELLING [None]
  - OEDEMA PERIPHERAL [None]
  - INJECTION SITE URTICARIA [None]
